FAERS Safety Report 10020878 (Version 3)
Quarter: 2014Q4

REPORT INFORMATION
  Report Type: Spontaneous
  Country: US (occurrence: US)
  Receive Date: 20140319
  Receipt Date: 20141010
  Transmission Date: 20150528
  Serious: Yes (Other)
  Sender: FDA-Public Use
  Company Number: US-ASTRAZENECA-2014SE18004

PATIENT
  Age: 69 Year
  Sex: Female
  Weight: 61.2 kg

DRUGS (4)
  1. SIMVASTATIN. [Concomitant]
     Active Substance: SIMVASTATIN
     Indication: BLOOD CHOLESTEROL ABNORMAL
  2. LEVOTHYROXINE [Concomitant]
     Active Substance: LEVOTHYROXINE
     Indication: HYPOTHYROIDISM
  3. XGEVA [Concomitant]
     Active Substance: DENOSUMAB
     Indication: BONE DISORDER
  4. FASLODEX [Suspect]
     Active Substance: FULVESTRANT
     Indication: BREAST CANCER METASTATIC
     Route: 030
     Dates: start: 201312

REACTIONS (8)
  - Depression [Unknown]
  - Bone cancer [Unknown]
  - Dizziness [Not Recovered/Not Resolved]
  - Burning sensation [Unknown]
  - Insomnia [Unknown]
  - Neuropathy peripheral [Unknown]
  - Tooth discolouration [Unknown]
  - Blunted affect [Not Recovered/Not Resolved]

NARRATIVE: CASE EVENT DATE: 2014
